FAERS Safety Report 13197934 (Version 1)
Quarter: 2017Q1

REPORT INFORMATION
  Report Type: Spontaneous
  Country: US (occurrence: US)
  Receive Date: 20170208
  Receipt Date: 20170208
  Transmission Date: 20170428
  Serious: No
  Sender: FDA-Public Use
  Company Number: US-PERRIGO-16US000539

PATIENT
  Sex: Male
  Weight: 113.38 kg

DRUGS (4)
  1. LOSARTAN. [Concomitant]
     Active Substance: LOSARTAN
     Indication: BLOOD CHOLESTEROL INCREASED
     Dosage: UNK
     Route: 048
  2. IBUPROFEN AND DIPHENHYDRAMINE CITRATE [Suspect]
     Active Substance: DIPHENHYDRAMINE CITRATE\IBUPROFEN
     Indication: INSOMNIA
  3. IBUPROFEN AND DIPHENHYDRAMINE CITRATE [Suspect]
     Active Substance: DIPHENHYDRAMINE CITRATE\IBUPROFEN
     Indication: MUSCULOSKELETAL PAIN
     Dosage: 1 TABLET, PRN
     Route: 048
     Dates: start: 2014, end: 20160112
  4. CARDIAC THERAPY [Concomitant]
     Active Substance: UNSPECIFIED INGREDIENT
     Indication: CARDIAC DISORDER
     Dosage: UNK
     Route: 065

REACTIONS (3)
  - Poor quality sleep [Recovered/Resolved]
  - Underdose [Recovered/Resolved]
  - Expired product administered [Recovered/Resolved]

NARRATIVE: CASE EVENT DATE: 2014
